FAERS Safety Report 10581563 (Version 2)
Quarter: 2014Q4

REPORT INFORMATION
  Report Type: Report from Study
  Country: EG (occurrence: EG)
  Receive Date: 20141113
  Receipt Date: 20141126
  Transmission Date: 20150529
  Serious: Yes (Death, Hospitalization)
  Sender: FDA-Public Use
  Company Number: EG-SA-2014SA153625

PATIENT
  Age: 66 Year
  Sex: Male

DRUGS (1)
  1. LANTUS [Suspect]
     Active Substance: INSULIN GLARGINE
     Indication: TYPE 2 DIABETES MELLITUS
     Route: 058
     Dates: start: 20140310

REACTIONS (4)
  - Pneumonia [Fatal]
  - Hyperglycaemia [Unknown]
  - Respiratory failure [Fatal]
  - Diabetic ketoacidosis [Unknown]

NARRATIVE: CASE EVENT DATE: 20140414
